FAERS Safety Report 9441790 (Version 2)
Quarter: 2013Q3

REPORT INFORMATION
  Report Type: Spontaneous
  Country: US (occurrence: US)
  Receive Date: 20130806
  Receipt Date: 20130902
  Transmission Date: 20140515
  Serious: No
  Sender: FDA-Public Use
  Company Number: US-PFIZER INC-2013224265

PATIENT
  Age: 47 Year
  Sex: Male

DRUGS (2)
  1. INLYTA [Suspect]
     Indication: METASTASES TO LUNG
     Dosage: 5 MG, Q 12 H, 4 WEEKS ON, 2 WEEKS OFF
     Route: 048
     Dates: start: 20130603
  2. INLYTA [Suspect]
     Indication: METASTATIC RENAL CELL CARCINOMA

REACTIONS (1)
  - Diarrhoea [Recovered/Resolved]
